FAERS Safety Report 26169194 (Version 1)
Quarter: 2025Q4

REPORT INFORMATION
  Report Type: Spontaneous
  Country: US (occurrence: None)
  Receive Date: 20251216
  Receipt Date: 20251216
  Transmission Date: 20260118
  Serious: No
  Sender: FDA-CTU
  Company Number: None

PATIENT
  Age: 8 Year
  Sex: Female
  Weight: 24.04 kg

DRUGS (1)
  1. VIJOICE [Suspect]
     Active Substance: ALPELISIB
     Indication: Congenital anomaly
     Dosage: FREQUENCY : DAILY;
     Route: 048
     Dates: start: 20251201

REACTIONS (3)
  - COVID-19 [None]
  - Vomiting [None]
  - Intentional dose omission [None]

NARRATIVE: CASE EVENT DATE: 20251215
